FAERS Safety Report 7790873-7 (Version None)
Quarter: 2011Q3

REPORT INFORMATION
  Report Type: 
  Country: None (occurrence: None)
  Receive Date: 20110930
  Receipt Date: 20110921
  Transmission Date: 20111222
  Serious: Yes (Hospitalization, Other)
  Sender: FDA-Public Use
  Company Number: US-ASTRAZENECA-2010SE53152

PATIENT
  Age: 82 Year
  Sex: Female

DRUGS (5)
  1. CRESTOR [Suspect]
     Indication: HYPERLIPIDAEMIA
     Route: 048
     Dates: start: 20090101
  2. PREVACID [Concomitant]
  3. NEXIUM [Suspect]
     Indication: GASTROOESOPHAGEAL REFLUX DISEASE
     Route: 048
     Dates: start: 20091101
  4. TOPROL-XL [Suspect]
     Indication: HYPERTENSION
     Route: 048
     Dates: start: 20080101
  5. TOPROL-XL [Suspect]
     Indication: CORONARY ARTERY DISEASE
     Route: 048
     Dates: start: 20080101

REACTIONS (6)
  - DRUG DOSE OMISSION [None]
  - COLON ADENOMA [None]
  - COLONIC POLYP [None]
  - RECTAL POLYP [None]
  - WRONG DRUG ADMINISTERED [None]
  - ACTIVITIES OF DAILY LIVING IMPAIRED [None]
